FAERS Safety Report 7157579-9 (Version None)
Quarter: 2010Q4

REPORT INFORMATION
  Report Type: 
  Country: None (occurrence: None)
  Receive Date: 20101214
  Receipt Date: 20100224
  Transmission Date: 20110411
  Serious: No
  Sender: FDA-Public Use
  Company Number: US-ASTRAZENECA-2010SE08415

PATIENT
  Age: 68 Year
  Sex: Female

DRUGS (5)
  1. CRESTOR [Suspect]
     Route: 048
  2. LISINOPRIL [Concomitant]
  3. HCTZ 25 [Concomitant]
  4. AMLODIPINE 2.5 [Concomitant]
  5. FOSAMAX [Concomitant]

REACTIONS (1)
  - HYPERTENSION [None]
